FAERS Safety Report 4448829-8 (Version None)
Quarter: 2004Q3

REPORT INFORMATION
  Report Type: 
  Country: None (occurrence: None)
  Receive Date: 20040909
  Receipt Date: 20040830
  Transmission Date: 20050211
  Serious: Yes (Hospitalization, Other)
  Sender: FDA-Public Use
  Company Number: DEWYE167010JUN03

PATIENT
  Age: 67 Year
  Sex: Male

DRUGS (4)
  1. RAPAMUNE [Suspect]
     Indication: PROPHYLAXIS AGAINST TRANSPLANT REJECTION
     Dosage: 5 MG ORAL; SEE IMAGE
     Route: 048
     Dates: start: 20030113, end: 20030121
  2. RAPAMUNE [Suspect]
     Indication: PROPHYLAXIS AGAINST TRANSPLANT REJECTION
     Dosage: 5 MG ORAL; SEE IMAGE
     Route: 048
     Dates: start: 20030122, end: 20030206
  3. RAPAMUNE [Suspect]
     Indication: PROPHYLAXIS AGAINST TRANSPLANT REJECTION
     Dosage: 5 MG ORAL; SEE IMAGE
     Route: 048
     Dates: start: 20030207, end: 20030311
  4. RAPAMUNE [Suspect]
     Indication: PROPHYLAXIS AGAINST TRANSPLANT REJECTION
     Dosage: 5 MG ORAL; SEE IMAGE
     Route: 048
     Dates: start: 20030312, end: 20030505

REACTIONS (3)
  - BASAL CELL CARCINOMA [None]
  - BOWEN'S DISEASE [None]
  - SQUAMOUS CELL CARCINOMA [None]
